FAERS Safety Report 24268556 (Version 5)
Quarter: 2024Q3

REPORT INFORMATION
  Report Type: Spontaneous
  Country: DK (occurrence: DK)
  Receive Date: 20240830
  Receipt Date: 20240911
  Transmission Date: 20241017
  Serious: Yes (Life-Threatening, Hospitalization, Other)
  Sender: NOVARTIS
  Company Number: DK-002147023-NVSC2024DK174613

PATIENT
  Age: 37 Year
  Sex: Male

DRUGS (1)
  1. KESIMPTA [Suspect]
     Active Substance: OFATUMUMAB
     Indication: Relapsing-remitting multiple sclerosis
     Dosage: 20 MG, Q4W (SOLUTION FOR INFUSION)
     Route: 058
     Dates: start: 20230417, end: 20231221

REACTIONS (4)
  - Pneumonia [Recovered/Resolved]
  - Pyrexia [Unknown]
  - Cough [Unknown]
  - Respiratory failure [Recovered/Resolved]

NARRATIVE: CASE EVENT DATE: 20240119
